FAERS Safety Report 6477230-0 (Version None)
Quarter: 2009Q4

REPORT INFORMATION
  Report Type: 
  Country: None (occurrence: None)
  Receive Date: 20091204
  Receipt Date: 20091204
  Transmission Date: 20100525
  Serious: Yes (Other)
  Sender: FDA-Public Use
  Company Number: None

PATIENT
  Age: 66 Year
  Sex: Female
  Weight: 87.9978 kg

DRUGS (6)
  1. ARIMIDEX [Suspect]
     Indication: BREAST CANCER
     Dosage: 1MG DAILY PO
     Route: 048
     Dates: start: 20090713, end: 20090729
  2. FOXAMAX [Concomitant]
  3. REMERON [Concomitant]
  4. LEXAPRO [Concomitant]
  5. TRAZODONE [Concomitant]
  6. SEROQUEL XR [Concomitant]

REACTIONS (2)
  - ANGIOEDEMA [None]
  - MOUTH ULCERATION [None]
